FAERS Safety Report 4919981-2 (Version None)
Quarter: 2006Q1

REPORT INFORMATION
  Report Type: 
  Country: None (occurrence: None)
  Receive Date: 20060216
  Receipt Date: 20060209
  Transmission Date: 20060701
  Serious: Yes (Other)
  Sender: FDA-Public Use
  Company Number: GRP06000028

PATIENT
  Sex: Female

DRUGS (3)
  1. ACTONEL [Suspect]
     Indication: OSTEOPOROSIS
     Dosage: 35 MG, 1 /WEEK, ORAL
     Route: 048
  2. EDRONAX (REBOXETINE) [Concomitant]
  3. STANGYL (TRIMIPRAMINE MALEATE) [Concomitant]

REACTIONS (2)
  - HAEMATEMESIS [None]
  - NECROTISING OESOPHAGITIS [None]
